FAERS Safety Report 11119966 (Version 2)
Quarter: 2015Q2

REPORT INFORMATION
  Report Type: Spontaneous
  Country: RU (occurrence: RU)
  Receive Date: 20150518
  Receipt Date: 20150529
  Transmission Date: 20150821
  Serious: Yes (Disabling)
  Sender: FDA-Public Use
  Company Number: RU-B.I. PHARMACEUTICALS,INC./RIDGEFIELD-2015-BI-25394RZ

PATIENT
  Age: 26 Year
  Sex: Male
  Weight: 80 kg

DRUGS (2)
  1. MOVALIS [Suspect]
     Active Substance: MELOXICAM
     Indication: BACK PAIN
     Dosage: 15 MG
     Route: 048
     Dates: start: 20150412, end: 20150423
  2. DIAFLEKS [Concomitant]
     Indication: BACK PAIN
     Dosage: 50 MG
     Route: 065
     Dates: start: 20150412, end: 20150423

REACTIONS (3)
  - Body temperature increased [Unknown]
  - Drug-induced liver injury [Not Recovered/Not Resolved]
  - Headache [Unknown]

NARRATIVE: CASE EVENT DATE: 20150414
